FAERS Safety Report 10733380 (Version 2)
Quarter: 2015Q1

REPORT INFORMATION
  Report Type: Spontaneous
  Country: US (occurrence: None)
  Receive Date: 20150120
  Receipt Date: 20150225
  Transmission Date: 20150721
  Serious: Yes (Hospitalization)
  Sender: FDA-Public Use
  Company Number: 2015AP005171

PATIENT
  Age: 52 Year
  Sex: Female
  Weight: 71 kg

DRUGS (8)
  1. VITAMIN B12 [Concomitant]
     Active Substance: CYANOCOBALAMIN
  2. MVI (VITAMINS NOS) [Concomitant]
  3. CITALOPRAM [Concomitant]
     Active Substance: CITALOPRAM HYDROBROMIDE
  4. FERRIPROX [Suspect]
     Active Substance: DEFERIPRONE
     Indication: LEUKAEMIA
     Route: 048
     Dates: start: 20141202
  5. BIOTIN (BIOTIN) [Concomitant]
  6. FERRIPROX [Suspect]
     Active Substance: DEFERIPRONE
     Indication: HAEMOCHROMATOSIS
     Route: 048
     Dates: start: 20141202
  7. VITAMIN D (ERGOCALCIFEROL) [Concomitant]
     Active Substance: ERGOCALCIFEROL
  8. PEPCID [Concomitant]
     Active Substance: FAMOTIDINE

REACTIONS (3)
  - Pain [None]
  - Vomiting [None]
  - Pyrexia [None]

NARRATIVE: CASE EVENT DATE: 20141229
